FAERS Safety Report 16456163 (Version 1)
Quarter: 2019Q2

REPORT INFORMATION
  Report Type: Spontaneous
  Country: US (occurrence: US)
  Receive Date: 20190620
  Receipt Date: 20190620
  Transmission Date: 20190711
  Serious: Yes (Other)
  Sender: FDA-Public Use
  Company Number: US-PFIZER INC-2019256853

PATIENT
  Age: 60 Year
  Sex: Male
  Weight: 82 kg

DRUGS (1)
  1. XELJANZ XR [Suspect]
     Active Substance: TOFACITINIB CITRATE
     Indication: RHEUMATOID ARTHRITIS
     Dosage: 11 MG, DAILY
     Route: 048
     Dates: start: 201801, end: 201803

REACTIONS (5)
  - Lung infection [Recovered/Resolved]
  - Pneumothorax [Unknown]
  - Immune system disorder [Unknown]
  - Pneumonia [Unknown]
  - Cough [Unknown]

NARRATIVE: CASE EVENT DATE: 2018
